FAERS Safety Report 8265931-3 (Version None)
Quarter: 2012Q2

REPORT INFORMATION
  Report Type: 
  Country: None (occurrence: None)
  Receive Date: 20120406
  Receipt Date: 20120327
  Transmission Date: 20120825
  Serious: Yes (Hospitalization)
  Sender: FDA-Public Use
  Company Number: CG-MERCK-1203USA03391

PATIENT
  Age: 25 Year
  Sex: Male
  Weight: 58 kg

DRUGS (1)
  1. STROMECTOL [Suspect]
     Indication: ONCHOCERCIASIS
     Route: 048
     Dates: start: 20111216, end: 20111216

REACTIONS (7)
  - PAIN [None]
  - CONJUNCTIVAL HAEMORRHAGE [None]
  - COMA SCALE [None]
  - ASTHENIA [None]
  - SPEECH DISORDER [None]
  - MALARIA [None]
  - ENCEPHALOPATHY [None]
